FAERS Safety Report 4343679-5 (Version None)
Quarter: 2004Q2

REPORT INFORMATION
  Report Type: 
  Country: None (occurrence: None)
  Receive Date: 20040422
  Receipt Date: 20040312
  Transmission Date: 20050107
  Serious: Yes (Other)
  Sender: FDA-Public Use
  Company Number: 200410554DE

PATIENT
  Age: 58 Year
  Sex: Female

DRUGS (4)
  1. TRENTAL [Suspect]
     Indication: SUDDEN HEARING LOSS
     Route: 048
     Dates: start: 20040203, end: 20040223
  2. NEUROTRAT [Concomitant]
     Indication: TINNITUS
  3. ENALAPRIL MALEATE [Concomitant]
     Indication: HYPERTENSION
     Route: 048
  4. ESTRADIOL VALERATE [Concomitant]
     Indication: MENOPAUSE
     Route: 048

REACTIONS (2)
  - PHARMACEUTICAL PRODUCT COMPLAINT [None]
  - RENAL PAIN [None]
